FAERS Safety Report 4883577-1 (Version None)
Quarter: 2006Q1

REPORT INFORMATION
  Report Type: 
  Country: None (occurrence: None)
  Receive Date: 20060118
  Receipt Date: 20050829
  Transmission Date: 20060701
  Serious: Yes (Hospitalization, Other)
  Sender: FDA-Public Use
  Company Number: US-MERCK-0508USA04685

PATIENT
  Age: 59 Year
  Sex: Female
  Weight: 71 kg

DRUGS (1)
  1. VIOXX [Suspect]
     Indication: PAIN
     Route: 048
     Dates: start: 20010401

REACTIONS (28)
  - ANAEMIA [None]
  - ASTHENIA [None]
  - BLOOD POTASSIUM DECREASED [None]
  - BREAST CANCER STAGE II [None]
  - CEREBROVASCULAR ACCIDENT [None]
  - CHEST PAIN [None]
  - CONTUSION [None]
  - DIABETES MELLITUS [None]
  - DIARRHOEA [None]
  - DIVERTICULUM [None]
  - DIZZINESS [None]
  - FALL [None]
  - GASTRITIS [None]
  - HAEMATOCHEZIA [None]
  - HAEMORRHOIDS [None]
  - HYPERTENSION [None]
  - LYMPHADENOPATHY [None]
  - ODYNOPHAGIA [None]
  - OESOPHAGITIS [None]
  - PALPITATIONS [None]
  - PAROTID GLAND ENLARGEMENT [None]
  - PNEUMONIA [None]
  - PULMONARY CONGESTION [None]
  - PYREXIA [None]
  - SENSATION OF PRESSURE [None]
  - STOMATITIS [None]
  - STRESS [None]
  - SYNCOPE [None]
